FAERS Safety Report 14989053 (Version 1)
Quarter: 2018Q2

REPORT INFORMATION
  Report Type: Report from Study
  Country: IT (occurrence: IT)
  Receive Date: 20180608
  Receipt Date: 20180608
  Transmission Date: 20180711
  Serious: Yes (Other)
  Sender: FDA-Public Use
  Company Number: IT-MYLANLABS-2018M1038381

PATIENT
  Age: 60 Year
  Sex: Male

DRUGS (2)
  1. ATORVASTATIN [Suspect]
     Active Substance: ATORVASTATIN
     Indication: PRODUCT USED FOR UNKNOWN INDICATION
     Route: 065
  2. INFLUENZA VIRUS VACCINE [Concomitant]
     Active Substance: INFLUENZA VIRUS VACCINE
     Indication: IMMUNISATION
     Dosage: UNK
     Route: 065

REACTIONS (10)
  - Back pain [Recovered/Resolved]
  - Foaming at mouth [Recovered/Resolved]
  - Tonic convulsion [Recovered/Resolved]
  - Gaze palsy [Recovered/Resolved]
  - Rhabdomyolysis [Recovered/Resolved]
  - Vomiting [Recovered/Resolved]
  - Seizure [Recovered/Resolved]
  - Generalised tonic-clonic seizure [Recovered/Resolved]
  - Hyperglycaemia [Recovered/Resolved]
  - Leukocytosis [Recovered/Resolved]
